FAERS Safety Report 13695035 (Version 5)
Quarter: 2021Q2

REPORT INFORMATION
  Report Type: Spontaneous
  Country: US (occurrence: US)
  Receive Date: 20170627
  Receipt Date: 20210401
  Transmission Date: 20210716
  Serious: Yes (Other)
  Sender: FDA-Public Use
  Company Number: US-BAYER-2017-117753

PATIENT
  Age: 53 Year
  Sex: Female

DRUGS (2)
  1. WELCHOL [Concomitant]
     Active Substance: COLESEVELAM HYDROCHLORIDE
     Dosage: UNK
     Dates: start: 20170601
  2. EOVIST [Suspect]
     Active Substance: GADOXETATE DISODIUM
     Indication: MAGNETIC RESONANCE IMAGING HEPATOBILIARY
     Dosage: 17 ML, ONCE
     Dates: start: 20161230, end: 20161230

REACTIONS (51)
  - Scar [None]
  - Rash [None]
  - Oedema [None]
  - Dyspnoea [None]
  - Incorrect dose administered [None]
  - Blood pressure decreased [None]
  - Musculoskeletal discomfort [None]
  - Anxiety [None]
  - Neuralgia [None]
  - Musculoskeletal chest pain [None]
  - Feeling abnormal [None]
  - Musculoskeletal stiffness [None]
  - Myalgia [None]
  - Muscle contracture [None]
  - Skin hyperpigmentation [None]
  - Joint stiffness [None]
  - Cognitive disorder [None]
  - Palpitations [None]
  - Contrast media toxicity [None]
  - Dysgeusia [None]
  - Musculoskeletal disorder [None]
  - Pain in extremity [Not Recovered/Not Resolved]
  - Paraesthesia [None]
  - Peripheral swelling [None]
  - Skin discolouration [None]
  - Pain in extremity [None]
  - Skin lesion [None]
  - Musculoskeletal stiffness [None]
  - Cyst [None]
  - Skin induration [None]
  - Gadolinium deposition disease [None]
  - Unevaluable event [None]
  - Abdominal pain [None]
  - Impaired reasoning [None]
  - Neuropathy peripheral [None]
  - Contrast media deposition [None]
  - Ocular hyperaemia [None]
  - Soft tissue haemorrhage [None]
  - Flatulence [None]
  - Abdominal distension [None]
  - Myosclerosis [None]
  - Muscle spasms [None]
  - Peripheral swelling [None]
  - Bone pain [None]
  - Skin fibrosis [None]
  - Nontherapeutic agent urine positive [Not Recovered/Not Resolved]
  - Chills [None]
  - Conjunctivitis [None]
  - Depression [None]
  - Joint range of motion decreased [None]
  - Skin disorder [None]

NARRATIVE: CASE EVENT DATE: 2017
